FAERS Safety Report 26110859 (Version 1)
Quarter: 2025Q4

REPORT INFORMATION
  Report Type: Spontaneous
  Country: US (occurrence: US)
  Receive Date: 20251202
  Receipt Date: 20251202
  Transmission Date: 20260118
  Serious: No
  Sender: HIKMA
  Company Number: US-HIKMA PHARMACEUTICALS USA INC.-US-H14001-25-01175

PATIENT
  Sex: Male

DRUGS (1)
  1. IPRATROPIUM BROMIDE [Suspect]
     Active Substance: IPRATROPIUM BROMIDE
     Indication: Product used for unknown indication
     Dosage: FOUR TIMES AS NEEDED
     Route: 045

REACTIONS (7)
  - Drug hypersensitivity [Unknown]
  - Nasal disorder [Unknown]
  - Dry mouth [Unknown]
  - Nasopharyngitis [Unknown]
  - Infection [Unknown]
  - Sputum discoloured [Unknown]
  - Product dose omission issue [Unknown]
